FAERS Safety Report 12936703 (Version 2)
Quarter: 2016Q4

REPORT INFORMATION
  Report Type: Spontaneous
  Country: JP (occurrence: JP)
  Receive Date: 20161114
  Receipt Date: 20161130
  Transmission Date: 20170207
  Serious: Yes (Hospitalization, Other)
  Sender: FDA-Public Use
  Company Number: JP-GLAXOSMITHKLINE-JP2016JPN163958

PATIENT
  Age: 82 Year
  Sex: Female

DRUGS (3)
  1. ZOVIRAX [Suspect]
     Active Substance: ACYCLOVIR
     Indication: OPHTHALMIC HERPES SIMPLEX
     Dosage: UNK
     Route: 031
  2. UNKNOWN DRUG [Concomitant]
     Active Substance: UNSPECIFIED INGREDIENT
     Indication: OPHTHALMIC HERPES SIMPLEX
     Dosage: UNK
  3. LEVOFLOXACIN. [Concomitant]
     Active Substance: LEVOFLOXACIN
     Indication: KERATITIS BACTERIAL
     Dosage: UNK

REACTIONS (8)
  - Condition aggravated [Recovering/Resolving]
  - Hypopyon [Recovering/Resolving]
  - Corneal infiltrates [Recovering/Resolving]
  - Eye pain [Recovering/Resolving]
  - Corneal epithelium defect [Recovering/Resolving]
  - Visual acuity reduced [Recovering/Resolving]
  - Cataract [Unknown]
  - Corneal scar [Unknown]
